FAERS Safety Report 24330597 (Version 1)
Quarter: 2024Q3

REPORT INFORMATION
  Report Type: Report from Study
  Country: TR (occurrence: TR)
  Receive Date: 20240918
  Receipt Date: 20240918
  Transmission Date: 20241016
  Serious: Yes (Other)
  Sender: PANACEA BIOTEC
  Company Number: TR-PBT-009687

PATIENT
  Age: 17 Year
  Sex: Female

DRUGS (4)
  1. TACROLIMUS [Suspect]
     Active Substance: TACROLIMUS
     Indication: Prophylaxis against graft versus host disease
     Dosage: LOW-DOSE, ON THE 68TH POSTOPERATIVE DAY
     Route: 065
  2. MYCOPHENOLATE MOFETIL [Suspect]
     Active Substance: MYCOPHENOLATE MOFETIL
     Indication: Prophylaxis against graft versus host disease
     Dosage: LOW-DOSE ON THE 68TH POSTOPERATIVE DAY
     Route: 065
  3. TACROLIMUS [Suspect]
     Active Substance: TACROLIMUS
     Indication: Graft versus host disease in skin
     Dosage: LOW-DOSE, ON THE 68TH POSTOPERATIVE DAY
     Route: 065
  4. MYCOPHENOLATE MOFETIL [Suspect]
     Active Substance: MYCOPHENOLATE MOFETIL
     Indication: Graft versus host disease in skin
     Dosage: LOW-DOSE ON THE 68TH POSTOPERATIVE DAY
     Route: 065

REACTIONS (3)
  - Drug ineffective for unapproved indication [Unknown]
  - Epstein-Barr virus test positive [Unknown]
  - Klebsiella test positive [Unknown]
